FAERS Safety Report 12432307 (Version 7)
Quarter: 2016Q3

REPORT INFORMATION
  Report Type: Report from Study
  Country: JP (occurrence: JP)
  Receive Date: 20160603
  Receipt Date: 20160728
  Transmission Date: 20161109
  Serious: Yes (Hospitalization)
  Sender: FDA-Public Use
  Company Number: JP-ROCHE-1767490

PATIENT
  Age: 68 Year
  Sex: Male
  Weight: 65.9 kg

DRUGS (3)
  1. PACLITAXEL. [Suspect]
     Active Substance: PACLITAXEL
     Indication: NON-SMALL CELL LUNG CANCER
     Dosage: (UNIT DOSE PER PROTOCOL) THE MOST RECENT DOSE PRIOR TO EVENT ONSET WAS 346 MG ON 17/MAY/2016.
     Route: 042
     Dates: start: 20160517
  2. ATEZOLIZUMAB [Suspect]
     Active Substance: ATEZOLIZUMAB
     Indication: NON-SMALL CELL LUNG CANCER
     Dosage: THIS WAS THE MOST RECENT DOSE PRIOR TO EVENT ONSET.
     Route: 042
     Dates: start: 20160517
  3. CARBOPLATIN. [Suspect]
     Active Substance: CARBOPLATIN
     Indication: NON-SMALL CELL LUNG CANCER
     Dosage: AUC = 6 MG/ML/MIN (PER PROTOCOL). MOST RECENT DOSE PRIOR TO EVENT ONSET WAS 526 MG ON 17/MAY/2016
     Route: 042
     Dates: start: 20160517

REACTIONS (1)
  - Erythema multiforme [Recovered/Resolved]

NARRATIVE: CASE EVENT DATE: 20160526
